FAERS Safety Report 6385375-9 (Version None)
Quarter: 2009Q4

REPORT INFORMATION
  Report Type: 
  Country: None (occurrence: None)
  Receive Date: 20091002
  Receipt Date: 20080902
  Transmission Date: 20100525
  Serious: No
  Sender: FDA-Public Use
  Company Number: US-ASTRAZENECA-2008UW18073

PATIENT

DRUGS (1)
  1. ARIMIDEX [Suspect]
     Dosage: DAILY
     Route: 048

REACTIONS (5)
  - CARPAL TUNNEL SYNDROME [None]
  - NEUROMYOPATHY [None]
  - OSTEOARTHRITIS [None]
  - PAIN [None]
  - RHEUMATOID ARTHRITIS [None]
